FAERS Safety Report 11566445 (Version 1)
Quarter: 2015Q3

REPORT INFORMATION
  Report Type: Spontaneous
  Country: US (occurrence: US)
  Receive Date: 20150916
  Receipt Date: 20150916
  Transmission Date: 20151125
  Serious: No
  Sender: FDA-Public Use
  Company Number: US-ELI_LILLY_AND_COMPANY-US200906001882

PATIENT
  Sex: Male

DRUGS (6)
  1. LEXIVA [Concomitant]
     Active Substance: FOSAMPRENAVIR CALCIUM
  2. TRIZIVIR [Concomitant]
     Active Substance: ABACAVIR SULFATE\LAMIVUDINE\ZIDOVUDINE
  3. NORVIR [Concomitant]
     Active Substance: RITONAVIR
  4. DIOVAN [Concomitant]
     Active Substance: VALSARTAN
  5. AVODART [Concomitant]
     Active Substance: DUTASTERIDE
  6. FORTEO [Suspect]
     Active Substance: TERIPARATIDE
     Dosage: UNK, UNK
     Dates: start: 200907

REACTIONS (3)
  - Bone density decreased [Unknown]
  - Blood calcium increased [Recovered/Resolved]
  - Drug ineffective [Unknown]

NARRATIVE: CASE EVENT DATE: 200809
